FAERS Safety Report 10475903 (Version 2)
Quarter: 2015Q4

REPORT INFORMATION
  Report Type: Spontaneous
  Country: US (occurrence: US)
  Receive Date: 20140925
  Receipt Date: 20151201
  Transmission Date: 20160304
  Serious: Yes (Other)
  Sender: FDA-Public Use
  Company Number: US-GLAXOSMITHKLINE-A1063139A

PATIENT
  Sex: Female

DRUGS (22)
  1. CEFTIN [Suspect]
     Active Substance: CEFUROXIME AXETIL
     Indication: PRODUCT USED FOR UNKNOWN INDICATION
     Dosage: UNKNOWN DOSING
     Route: 065
  2. COREG [Concomitant]
     Active Substance: CARVEDILOL
  3. PROCRIT [Concomitant]
     Active Substance: ERYTHROPOIETIN
  4. LUVOX CR [Concomitant]
     Active Substance: FLUVOXAMINE MALEATE
  5. BENZOIN [Suspect]
     Active Substance: ALOE\BENZOIN\LIQUIDAMBAR STYRACIFLUA RESIN\TOLU BALSAM
     Indication: PRODUCT USED FOR UNKNOWN INDICATION
  6. DESYREL [Concomitant]
     Active Substance: TRAZODONE HYDROCHLORIDE
  7. VITAMIN D [Concomitant]
     Active Substance: CHOLECALCIFEROL
  8. WELLBUTRIN XL [Suspect]
     Active Substance: BUPROPION HYDROCHLORIDE
     Indication: PRODUCT USED FOR UNKNOWN INDICATION
  9. CALCIUM CARBONATE + MAGNESIUM [Concomitant]
  10. CARDIZEM [Suspect]
     Active Substance: DILTIAZEM HYDROCHLORIDE
     Indication: PRODUCT USED FOR UNKNOWN INDICATION
  11. NORVASC [Suspect]
     Active Substance: AMLODIPINE BESYLATE
     Indication: PRODUCT USED FOR UNKNOWN INDICATION
  12. TEGRETOL [Concomitant]
     Active Substance: CARBAMAZEPINE
  13. SYNTHROID [Concomitant]
     Active Substance: LEVOTHYROXINE SODIUM
  14. TYLENOL [Concomitant]
     Active Substance: ACETAMINOPHEN
  15. CITRACAL + D [Concomitant]
     Active Substance: CALCIUM CITRATE\VITAMIN D
  16. ULTRAM ER [Concomitant]
     Active Substance: TRAMADOL HYDROCHLORIDE
  17. LUVOX [Concomitant]
     Active Substance: FLUVOXAMINE MALEATE
  18. BETADINE [Suspect]
     Active Substance: POVIDONE-IODINE
     Indication: PRODUCT USED FOR UNKNOWN INDICATION
  19. PENICILLIN V POTASSIUM. [Suspect]
     Active Substance: PENICILLIN V POTASSIUM
     Indication: PRODUCT USED FOR UNKNOWN INDICATION
  20. ECOTRIN [Concomitant]
     Active Substance: ASPIRIN
  21. PRILOSEC [Concomitant]
     Active Substance: OMEPRAZOLE MAGNESIUM
  22. LYRICA [Concomitant]
     Active Substance: PREGABALIN

REACTIONS (28)
  - Type 2 diabetes mellitus [Unknown]
  - Knee arthroplasty [Unknown]
  - Drug hypersensitivity [Unknown]
  - Osteoarthritis [Unknown]
  - Red blood cell sedimentation rate increased [Unknown]
  - Urticaria [Unknown]
  - Intervertebral disc protrusion [Unknown]
  - Hypercholesterolaemia [Unknown]
  - Hyperkalaemia [Unknown]
  - Mental status changes [Unknown]
  - Stress urinary incontinence [Unknown]
  - Anaemia [Unknown]
  - Dyspepsia [Unknown]
  - Episcleritis [Unknown]
  - Obesity [Unknown]
  - Bradycardia [Unknown]
  - Renal failure [Unknown]
  - Chronic kidney disease [Unknown]
  - Hypersensitivity [Unknown]
  - Trigger finger [Unknown]
  - Tendonitis [Unknown]
  - Gait disturbance [Unknown]
  - Bipolar I disorder [Unknown]
  - Abdominal discomfort [Unknown]
  - Hypothyroidism [Unknown]
  - Back pain [Unknown]
  - Arthralgia [Unknown]
  - Oedema [Unknown]

NARRATIVE: CASE EVENT DATE: 2002
